FAERS Safety Report 8163818-8 (Version None)
Quarter: 2012Q1

REPORT INFORMATION
  Report Type: 
  Country: None (occurrence: None)
  Receive Date: 20120224
  Receipt Date: 20120217
  Transmission Date: 20120608
  Serious: Yes (Congenital Anomaly, Other)
  Sender: FDA-Public Use
  Company Number: US-PFIZER INC-2011302123

PATIENT
  Sex: Female
  Weight: 3.43 kg

DRUGS (7)
  1. ZOLOFT [Suspect]
     Dosage: UNK
     Route: 064
     Dates: start: 19970911
  2. ZITHROMAX [Concomitant]
     Dosage: AS DIRECTED
     Route: 064
  3. ZOLOFT [Suspect]
     Dosage: 200 MG, DAILY
     Route: 064
     Dates: start: 19970509
  4. KEFLEX [Concomitant]
     Indication: OROPHARYNGEAL PAIN
     Dosage: 250 MG, 3X/DAY
     Route: 064
  5. MULTI-VITAMINS [Concomitant]
     Dosage: UNK
     Route: 064
  6. ENTEX SOLUTION [Concomitant]
     Dosage: UNK
     Route: 064
  7. ZITHROMAX [Concomitant]
     Dosage: AS DIRECTED
     Route: 064

REACTIONS (2)
  - LARGE FOR DATES BABY [None]
  - MATERNAL EXPOSURE TIMING UNSPECIFIED [None]
